FAERS Safety Report 24615930 (Version 2)
Quarter: 2024Q4

REPORT INFORMATION
  Report Type: Spontaneous
  Country: US (occurrence: US)
  Receive Date: 20241113
  Receipt Date: 20241126
  Transmission Date: 20250114
  Serious: No
  Sender: APELLIS PHARMACEUTICALS
  Company Number: US-APELLIS-2024-APL-0001453

PATIENT

DRUGS (1)
  1. SYFOVRE [Suspect]
     Active Substance: PEGCETACOPLAN
     Indication: Dry age-related macular degeneration
     Dosage: STARTED IN SEP-2023, EVERY 6 WEEKS
     Route: 031

REACTIONS (4)
  - Vision blurred [Recovered/Resolved]
  - Vitreous floaters [Recovered/Resolved]
  - Optic ischaemic neuropathy [Recovered/Resolved]
  - Colour blindness [Recovered/Resolved]
